FAERS Safety Report 23115191 (Version 1)
Quarter: 2023Q4

REPORT INFORMATION
  Report Type: Spontaneous
  Country: US (occurrence: None)
  Receive Date: 20231026
  Receipt Date: 20231026
  Transmission Date: 20240110
  Serious: Yes (Other)
  Sender: FDA-Public Use
  Company Number: None

PATIENT
  Sex: Male

DRUGS (11)
  1. HUMIRA [Suspect]
     Active Substance: ADALIMUMAB
     Indication: Rheumatoid arthritis
     Route: 058
     Dates: start: 20230315
  2. ATORVASTATIN TAB 20MG [Concomitant]
  3. BUPROPION [Concomitant]
     Active Substance: BUPROPION
  4. DILTIAZEM CAP 120MG ER [Concomitant]
  5. DULOXETINE CAP 60MG [Concomitant]
  6. ENBREL [Concomitant]
     Active Substance: ETANERCEPT
  7. LISINOPRIL [Concomitant]
     Active Substance: LISINOPRIL
  8. LORAZEPOAM TAB 0.5MG [Concomitant]
  9. METFORMIN TAB 500MG ER [Concomitant]
  10. MONTELUKAST TAB 10MG [Concomitant]
  11. OXYCODONE TAB 5MG [Concomitant]

REACTIONS (2)
  - Rheumatoid arthritis [None]
  - Product use issue [None]
